FAERS Safety Report 7321530-9 (Version None)
Quarter: 2011Q1

REPORT INFORMATION
  Report Type: 
  Country: None (occurrence: None)
  Receive Date: 20110228
  Receipt Date: 20100312
  Transmission Date: 20110831
  Serious: No
  Sender: FDA-Public Use
  Company Number: A0850002A

PATIENT
  Sex: Male

DRUGS (1)
  1. VALTREX [Suspect]
     Route: 048

REACTIONS (2)
  - DARK CIRCLES UNDER EYES [None]
  - HYPERSENSITIVITY [None]
